FAERS Safety Report 8068063-2 (Version None)
Quarter: 2012Q1

REPORT INFORMATION
  Report Type: 
  Country: None (occurrence: None)
  Receive Date: 20120124
  Receipt Date: 20110916
  Transmission Date: 20120608
  Serious: No
  Sender: FDA-Public Use
  Company Number: US-AMGEN-USASP2011047923

PATIENT
  Sex: Female

DRUGS (8)
  1. OXYCONTIN [Concomitant]
     Dosage: UNK MG, UNK
  2. PROLIA [Suspect]
     Indication: OSTEOPOROSIS
     Dosage: 60 MG, Q6MO
     Dates: start: 20110101
  3. FLEXERIL [Concomitant]
     Dosage: UNK
  4. MESTINON [Concomitant]
     Dosage: UNK
  5. BUTALBITAL [Concomitant]
     Dosage: UNK
  6. PROCRIT [Concomitant]
  7. LASIX [Concomitant]
     Dosage: UNK
  8. GABAPENTIN [Concomitant]
     Dosage: UNK MG, UNK

REACTIONS (3)
  - MUSCLE SPASMS [None]
  - POLLAKIURIA [None]
  - HYPOAESTHESIA [None]
